FAERS Safety Report 16951599 (Version 1)
Quarter: 2019Q4

REPORT INFORMATION
  Report Type: Spontaneous
  Country: HR (occurrence: HR)
  Receive Date: 20191023
  Receipt Date: 20191023
  Transmission Date: 20200122
  Serious: Yes (Other)
  Sender: FDA-Public Use
  Company Number: HR-BAYER-2019-184467

PATIENT
  Age: 64 Year
  Sex: Male

DRUGS (5)
  1. NEXAVAR [Suspect]
     Active Substance: SORAFENIB
     Indication: THYROID CANCER
     Dosage: UNK
  2. TRAMETINIB [Concomitant]
     Active Substance: TRAMETINIB
     Indication: THYROID CANCER
     Dosage: 2 MG, QD
  3. NEXAVAR [Suspect]
     Active Substance: SORAFENIB
     Indication: THYROID CANCER
     Dosage: DOSE REDUCED
  4. DABRAFENIB [Concomitant]
     Active Substance: DABRAFENIB
     Indication: THYROID CANCER
     Dosage: DAILY DOSE 300 MG
  5. NEXAVAR [Suspect]
     Active Substance: SORAFENIB
     Indication: THYROID CANCER
     Dosage: DOSE REDUCED

REACTIONS (2)
  - Skin toxicity [None]
  - Metastases to lung [None]
